FAERS Safety Report 6048652-7 (Version None)
Quarter: 2009Q1

REPORT INFORMATION
  Report Type: 
  Country: None (occurrence: None)
  Receive Date: 20090123
  Receipt Date: 20090115
  Transmission Date: 20090719
  Serious: Yes (Hospitalization)
  Sender: FDA-Public Use
  Company Number: FR-AVENTIS-200910155FR

PATIENT
  Age: 79 Year
  Sex: Female

DRUGS (6)
  1. LOVENOX [Suspect]
     Indication: ACUTE CORONARY SYNDROME
     Dates: start: 20081209
  2. ASPEGIC 1000 [Suspect]
     Indication: ACUTE CORONARY SYNDROME
     Dates: start: 20081208
  3. PLAVIX [Suspect]
     Indication: ACUTE CORONARY SYNDROME
     Route: 048
     Dates: start: 20081208
  4. CALCIPARINE [Suspect]
     Indication: ACUTE CORONARY SYNDROME
     Route: 058
     Dates: start: 20081208, end: 20081208
  5. AGRASTAT [Suspect]
     Indication: ACUTE CORONARY SYNDROME
     Route: 042
     Dates: start: 20081208, end: 20081210
  6. PRAZEPAM [Concomitant]
     Indication: DRUG USE FOR UNKNOWN INDICATION
     Route: 048

REACTIONS (2)
  - GASTRITIS EROSIVE [None]
  - GASTROINTESTINAL HAEMORRHAGE [None]
